FAERS Safety Report 9714201 (Version 2)
Quarter: 2015Q3

REPORT INFORMATION
  Report Type: Spontaneous
  Country: US (occurrence: US)
  Receive Date: 20131126
  Receipt Date: 20150803
  Transmission Date: 20151125
  Serious: No
  Sender: FDA-Public Use
  Company Number: US-GILEAD-2008-0019340

PATIENT
  Age: 60 Year
  Sex: Male
  Weight: 71.67 kg

DRUGS (14)
  1. NITROGLYCERIN. [Concomitant]
     Active Substance: NITROGLYCERIN
  2. MULTIVITAMIN [Concomitant]
     Active Substance: VITAMINS
  3. PLAVIX [Concomitant]
     Active Substance: CLOPIDOGREL BISULFATE
  4. ASPIRIN. [Concomitant]
     Active Substance: ASPIRIN
  5. LASIX [Concomitant]
     Active Substance: FUROSEMIDE
  6. COREG [Concomitant]
     Active Substance: CARVEDILOL
  7. NIACIN. [Concomitant]
     Active Substance: NIACIN
  8. ALDACTONE [Concomitant]
     Active Substance: SPIRONOLACTONE
  9. LANTUS [Concomitant]
     Active Substance: INSULIN GLARGINE
  10. MAGNESIUM OXIDE. [Concomitant]
     Active Substance: MAGNESIUM OXIDE
  11. LETAIRIS [Suspect]
     Active Substance: AMBRISENTAN
     Indication: PULMONARY ARTERIAL HYPERTENSION
     Route: 048
     Dates: start: 20081119
  12. COLACE [Concomitant]
     Active Substance: DOCUSATE SODIUM
  13. DIOVAN [Concomitant]
     Active Substance: VALSARTAN
  14. LIPITOR [Concomitant]
     Active Substance: ATORVASTATIN CALCIUM

REACTIONS (1)
  - Fluid retention [None]
